FAERS Safety Report 8801817 (Version 2)
Quarter: 2012Q4

REPORT INFORMATION
  Report Type: 
  Country: US (occurrence: US)
  Receive Date: 20120921
  Receipt Date: 20121025
  Transmission Date: 20130627
  Serious: Yes (Other)
  Sender: FDA-Public Use
  Company Number: US-PFIZER INC-2012232637

PATIENT
  Age: 82 Year
  Sex: Male

DRUGS (2)
  1. CELEBREX [Suspect]
     Indication: ARTHRALGIA
     Dosage: 200 mg, 1x/day
     Route: 048
     Dates: start: 20120822, end: 20120827
  2. WARFARIN [Suspect]
     Dosage: 3 mg daily

REACTIONS (6)
  - Melaena [Recovered/Resolved]
  - Haemoglobin decreased [Recovering/Resolving]
  - Dizziness [Unknown]
  - Abdominal pain upper [Unknown]
  - Asthenia [Unknown]
  - Fatigue [Unknown]
